FAERS Safety Report 24393439 (Version 1)
Quarter: 2024Q4

REPORT INFORMATION
  Report Type: Spontaneous
  Country: CH (occurrence: CH)
  Receive Date: 20241003
  Receipt Date: 20241003
  Transmission Date: 20250115
  Serious: Yes (Hospitalization, Other)
  Sender: SANDOZ
  Company Number: None

PATIENT
  Age: 49 Year
  Sex: Male
  Weight: 82.9 kg

DRUGS (24)
  1. CISPLATIN [Suspect]
     Active Substance: CISPLATIN
     Indication: Bladder transitional cell carcinoma
     Dosage: 70 MG N/A DOSE EVERY 1 DAY
     Route: 040
     Dates: start: 20240603, end: 20240604
  2. CISPLATIN [Suspect]
     Active Substance: CISPLATIN
     Dosage: 70 MG N/A DOSE EVERY 1 DAY
     Route: 040
     Dates: start: 20240618, end: 20240619
  3. CISPLATIN [Suspect]
     Active Substance: CISPLATIN
     Dosage: 70 MG N/A DOSE EVERY 1 DAY
     Route: 040
     Dates: start: 20240704, end: 20240705
  4. CISPLATIN [Suspect]
     Active Substance: CISPLATIN
     Dosage: 70 MG N/A DOSE EVERY 1 DAY
     Route: 040
     Dates: start: 20240719, end: 20240720
  5. DOXORUBICIN [Suspect]
     Active Substance: DOXORUBICIN
     Indication: Bladder transitional cell carcinoma
     Dosage: 123.6 MG N/A DOSE EVERY N/A TOTAL
     Route: 040
     Dates: start: 20240604, end: 20240604
  6. DOXORUBICIN [Suspect]
     Active Substance: DOXORUBICIN
     Dosage: 123.6 MG N/A DOSE EVERY N/A TOTAL
     Route: 040
     Dates: start: 20240619, end: 20240619
  7. DOXORUBICIN [Suspect]
     Active Substance: DOXORUBICIN
     Dosage: 123.6 MG N/A DOSE EVERY N/A TOTAL
     Route: 040
     Dates: start: 20240705, end: 20240705
  8. DOXORUBICIN [Suspect]
     Active Substance: DOXORUBICIN
     Dosage: 123.6 MG N/A DOSE EVERY N/A TOTAL
     Route: 040
     Dates: start: 20240720, end: 20240720
  9. METHOTREXATE SODIUM [Suspect]
     Active Substance: METHOTREXATE SODIUM
     Indication: Bladder transitional cell carcinoma
     Dosage: 125 MG N/A DOSE EVERY N/A TOTAL
     Route: 065
     Dates: start: 20240603, end: 20240603
  10. METHOTREXATE SODIUM [Suspect]
     Active Substance: METHOTREXATE SODIUM
     Dosage: 125 MG N/A DOSE EVERY N/A TOTAL
     Route: 065
     Dates: start: 20240618, end: 20240618
  11. METHOTREXATE SODIUM [Suspect]
     Active Substance: METHOTREXATE SODIUM
     Dosage: 125 MG N/A DOSE EVERY N/A TOTAL
     Route: 065
     Dates: start: 20240704, end: 20240704
  12. METHOTREXATE SODIUM [Suspect]
     Active Substance: METHOTREXATE SODIUM
     Dosage: 125 MG N/A DOSE EVERY N/A TOTAL
     Route: 065
     Dates: start: 20240719, end: 20240719
  13. METAMIZOLE SODIUM [Suspect]
     Active Substance: METAMIZOLE SODIUM
     Indication: Pain
     Dosage: 500 MG N/A DOSE EVERY N/A AS NECESSARY
     Route: 048
     Dates: end: 20240728
  14. VINBLASTINE SULFATE [Suspect]
     Active Substance: VINBLASTINE SULFATE
     Indication: Bladder transitional cell carcinoma
     Dosage: 6 MG N/A DOSE EVERY N/A TOTAL
     Route: 040
     Dates: start: 20240604, end: 20240604
  15. VINBLASTINE SULFATE [Suspect]
     Active Substance: VINBLASTINE SULFATE
     Dosage: 6 MG N/A DOSE EVERY N/A TOTAL
     Route: 040
     Dates: start: 20240619, end: 20240619
  16. VINBLASTINE SULFATE [Suspect]
     Active Substance: VINBLASTINE SULFATE
     Dosage: 6 MG N/A DOSE EVERY N/A TOTAL
     Route: 040
     Dates: start: 20240705, end: 20240705
  17. VINBLASTINE SULFATE [Suspect]
     Active Substance: VINBLASTINE SULFATE
     Dosage: 6 MG N/A DOSE EVERY N/A TOTAL
     Route: 040
     Dates: start: 20240720, end: 20240720
  18. CANDESARTAN CILEXETIL [Concomitant]
     Active Substance: CANDESARTAN CILEXETIL
     Indication: Product used for unknown indication
     Dosage: 8 MG N/A DOSE EVERY 1 DAY
     Route: 048
  19. DAFALGAN [Concomitant]
     Active Substance: ACETAMINOPHEN
     Indication: Product used for unknown indication
     Dosage: 500 MG N/A DOSE EVERY 6 HOUR
     Route: 048
  20. DEXAMETHASONE [Concomitant]
     Active Substance: DEXAMETHASONE
     Indication: Product used for unknown indication
     Dosage: 4 MG DEXAMETHASONE PER TABLET
     Route: 048
  21. MOVICOL [Concomitant]
     Active Substance: POLYETHYLENE GLYCOL 3350\POTASSIUM CHLORIDE\SODIUM BICARBONATE\SODIUM CHLORIDE
     Indication: Product used for unknown indication
     Dosage: MAX. 1 DOSAGE FORM PER DAY
     Route: 048
  22. ONDANSETRON [Concomitant]
     Active Substance: ONDANSETRON
     Indication: Product used for unknown indication
     Dosage: 4 MG N/A DOSE EVERY 12 HOUR
     Route: 048
  23. Paspertin [Concomitant]
     Indication: Product used for unknown indication
     Dosage: 10 MG N/A DOSE EVERY 6 HOUR
     Route: 048
  24. VENLAFAXINE [Concomitant]
     Active Substance: VENLAFAXINE HYDROCHLORIDE
     Indication: Product used for unknown indication
     Dosage: 75 MG N/A DOSE EVERY 12 HOUR
     Route: 048

REACTIONS (4)
  - Febrile neutropenia [Recovering/Resolving]
  - Mucosal inflammation [Recovering/Resolving]
  - Anaemia [Recovering/Resolving]
  - Thrombocytopenia [Recovering/Resolving]

NARRATIVE: CASE EVENT DATE: 20240701
